FAERS Safety Report 4296599-9 (Version None)
Quarter: 2004Q1

REPORT INFORMATION
  Report Type: 
  Country: None (occurrence: None)
  Receive Date: 20040217
  Receipt Date: 20040121
  Transmission Date: 20041129
  Serious: Yes (Hospitalization)
  Sender: FDA-Public Use
  Company Number: DE-GLAXOSMITHKLINE-D0042949A

PATIENT
  Age: 21 Year
  Sex: Male
  Weight: 60 kg

DRUGS (1)
  1. TAGONIS [Suspect]
     Indication: SUICIDE ATTEMPT
     Dosage: 400MG PER DAY
     Route: 048
     Dates: start: 20040121, end: 20040121

REACTIONS (3)
  - FATIGUE [None]
  - NAUSEA [None]
  - SUICIDE ATTEMPT [None]
